FAERS Safety Report 6494356-6 (Version None)
Quarter: 2009Q4

REPORT INFORMATION
  Report Type: 
  Country: None (occurrence: None)
  Receive Date: 20091214
  Receipt Date: 20091214
  Transmission Date: 20100525
  Serious: No
  Sender: FDA-Public Use
  Company Number: US-BRISTOL-MYERS SQUIBB COMPANY-14502405

PATIENT
  Age: 42 Year
  Sex: Male

DRUGS (5)
  1. ABILIFY [Suspect]
     Route: 048
     Dates: start: 20081111
  2. ABILIFY [Suspect]
     Indication: SCHIZOPHRENIA
     Route: 048
     Dates: start: 20081111
  3. CELEXA [Concomitant]
  4. BENADRYL [Concomitant]
  5. KLONOPIN [Concomitant]

REACTIONS (1)
  - MUSCLE SPASMS [None]
